FAERS Safety Report 21114339 (Version 1)
Quarter: 2022Q3

REPORT INFORMATION
  Report Type: Spontaneous
  Country: JP (occurrence: JP)
  Receive Date: 20220721
  Receipt Date: 20220721
  Transmission Date: 20221026
  Serious: Yes (Other)
  Sender: FDA-Public Use
  Company Number: JP-TAKEDA-2022TJP067575

PATIENT
  Age: 4 Year
  Sex: Male

DRUGS (1)
  1. COLCHICINE [Suspect]
     Active Substance: COLCHICINE
     Indication: Familial mediterranean fever
     Dosage: 0.01 MILLIGRAM/KILOGRAM, QD
     Route: 065

REACTIONS (3)
  - Hepatotoxicity [Unknown]
  - Contraindicated product administered [Unknown]
  - Drug intolerance [Unknown]
